FAERS Safety Report 7545707-2 (Version None)
Quarter: 2011Q2

REPORT INFORMATION
  Report Type: 
  Country: None (occurrence: None)
  Receive Date: 20110613
  Receipt Date: 20110613
  Transmission Date: 20111010
  Serious: Yes (Other)
  Sender: FDA-Public Use
  Company Number: None

PATIENT
  Age: 55 Year
  Sex: Male
  Weight: 93.441 kg

DRUGS (2)
  1. AMLODIPINE BESYLATE [Suspect]
     Indication: BLOOD PRESSURE
     Dosage: 1 DAILY
     Dates: start: 20110407, end: 20110519
  2. SIMVASTATIN [Suspect]
     Indication: BLOOD CHOLESTEROL
     Dosage: 1 DAILY
     Dates: start: 20110408, end: 20110522

REACTIONS (5)
  - TONGUE OEDEMA [None]
  - PAIN IN EXTREMITY [None]
  - LIP SWELLING [None]
  - OEDEMA PERIPHERAL [None]
  - MYALGIA [None]
